FAERS Safety Report 7414339-9 (Version None)
Quarter: 2011Q2

REPORT INFORMATION
  Report Type: 
  Country: None (occurrence: None)
  Receive Date: 20110414
  Receipt Date: 20110407
  Transmission Date: 20111010
  Serious: Yes (Hospitalization, Other)
  Sender: FDA-Public Use
  Company Number: US-CEPHALON-US024535

PATIENT
  Sex: Female
  Weight: 59 kg

DRUGS (6)
  1. REBIF [Suspect]
     Dosage: 3 IN ONE WEEK
     Route: 058
     Dates: start: 20080201
  2. KEPPRA [Suspect]
     Indication: CONVULSION
     Route: 065
  3. PROVIGIL [Suspect]
     Indication: FATIGUE
     Route: 048
  4. REBIF [Suspect]
     Indication: MULTIPLE SCLEROSIS
     Dosage: 3 IN ONE WEEK
     Route: 058
     Dates: start: 20061117, end: 20070901
  5. CARBATROL [Suspect]
     Indication: CONVULSION
     Route: 065
  6. IBUPROFEN [Concomitant]
     Indication: HEADACHE
     Route: 065

REACTIONS (4)
  - SUICIDE ATTEMPT [None]
  - DEPRESSION [None]
  - STRESS [None]
  - INTENTIONAL OVERDOSE [None]
